FAERS Safety Report 23759119 (Version 1)
Quarter: 2024Q2

REPORT INFORMATION
  Report Type: Other
  Country: US (occurrence: None)
  Receive Date: 20240418
  Receipt Date: 20240418
  Transmission Date: 20240716
  Serious: No
  Sender: FDA-Public Use
  Company Number: US-ROCHE-3435072

PATIENT
  Age: 56 Year
  Sex: Male

DRUGS (3)
  1. PIRFENIDONE [Suspect]
     Active Substance: PIRFENIDONE
     Indication: Hermansky-Pudlak syndrome
     Route: 048
  2. METHYLPREDNISOLONE [Concomitant]
     Active Substance: METHYLPREDNISOLONE
     Indication: Hermansky-Pudlak syndrome
     Route: 042
  3. PANTOPRAZOLE [Concomitant]
     Active Substance: PANTOPRAZOLE
     Indication: Hermansky-Pudlak syndrome

REACTIONS (2)
  - Off label use [Unknown]
  - No adverse event [Unknown]
